FAERS Safety Report 5102072-8 (Version None)
Quarter: 2006Q3

REPORT INFORMATION
  Report Type: 
  Country: None (occurrence: None)
  Receive Date: 20060907
  Receipt Date: 20060830
  Transmission Date: 20061208
  Serious: Yes (Death)
  Sender: FDA-Public Use
  Company Number: HQWYE202431AUG06

PATIENT
  Age: 68 Year
  Sex: Female

DRUGS (2)
  1. PREMARIN [Suspect]
     Indication: OESTROGEN REPLACEMENT THERAPY
  2. ESTRATEST [Suspect]
     Indication: HORMONE REPLACEMENT THERAPY

REACTIONS (1)
  - CEREBROVASCULAR ACCIDENT [None]
